FAERS Safety Report 25422967 (Version 2)
Quarter: 2025Q2

REPORT INFORMATION
  Report Type: Report from Study
  Country: CA (occurrence: CA)
  Receive Date: 20250611
  Receipt Date: 20250630
  Transmission Date: 20250717
  Serious: Yes (Hospitalization, Other)
  Sender: APOTEX
  Company Number: CA-APOTEX-2024AP020279

PATIENT
  Sex: Female

DRUGS (5)
  1. LENALIDOMIDE [Suspect]
     Active Substance: LENALIDOMIDE
     Indication: Plasma cell myeloma
     Dosage: 5 MILLIGRAM, Q.H.S. SWALLOW CAPSULE WHOLE
     Route: 048
     Dates: start: 20240925, end: 2024
  2. LENALIDOMIDE [Suspect]
     Active Substance: LENALIDOMIDE
     Indication: Lymphoma
     Dosage: 5 MILLIGRAM, Q.H.S. SWALLOW CAPSULE WHOLE
     Route: 048
     Dates: start: 2024, end: 2024
  3. LENALIDOMIDE [Suspect]
     Active Substance: LENALIDOMIDE
     Dosage: 5 MILLIGRAM, Q.H.S. SWALLOW CAPSULE WHOLE
     Route: 048
     Dates: start: 2024, end: 2024
  4. LENALIDOMIDE [Suspect]
     Active Substance: LENALIDOMIDE
     Dosage: 5 MILLIGRAM, Q.H.S. SWALLOW CAPSULE WHOLE
     Route: 048
     Dates: start: 2025, end: 2025
  5. LENALIDOMIDE [Suspect]
     Active Substance: LENALIDOMIDE
     Dosage: 5 MILLIGRAM, Q.H.S, TAKE 1 CAPSULE BY MOUTH ONCE DAILY AT BEDTIME.
     Route: 048
     Dates: start: 2025, end: 2025

REACTIONS (5)
  - Hospitalisation [Unknown]
  - Pneumonia [Unknown]
  - Off label use [Unknown]
  - Endodontic procedure [Unknown]
  - Rash [Unknown]

NARRATIVE: CASE EVENT DATE: 20240101
